FAERS Safety Report 6183124-0 (Version None)
Quarter: 2009Q2

REPORT INFORMATION
  Report Type: 
  Country: None (occurrence: None)
  Receive Date: 20090507
  Receipt Date: 20090429
  Transmission Date: 20091009
  Serious: Yes (Other)
  Sender: FDA-Public Use
  Company Number: PHHY2009BO12888

PATIENT
  Age: 53 Year
  Sex: Female

DRUGS (6)
  1. ZOMETA [Suspect]
     Indication: OSTEOPOROSIS
     Dosage: 4 MG, UNK
     Dates: start: 20090301
  2. DOSTINEX [Concomitant]
     Dosage: 0.5 MG, QW
  3. SHINBIT [Concomitant]
     Dosage: 75 MG DAILY
  4. ATEROID [Concomitant]
     Dosage: 15 MG DAILY
  5. CALCIUM [Concomitant]
  6. ASCORBIC ACID [Concomitant]

REACTIONS (9)
  - DRY SKIN [None]
  - FATIGUE [None]
  - NASOPHARYNGITIS [None]
  - PRURITUS [None]
  - PYREXIA [None]
  - RASH [None]
  - SOMNOLENCE [None]
  - TACHYCARDIA [None]
  - THIRST [None]
